FAERS Safety Report 7680668-7 (Version None)
Quarter: 2011Q3

REPORT INFORMATION
  Report Type: 
  Country: None (occurrence: None)
  Receive Date: 20110812
  Receipt Date: 20110801
  Transmission Date: 20111222
  Serious: Yes (Other)
  Sender: FDA-Public Use
  Company Number: GB-PFIZER INC-2011162835

PATIENT
  Age: 70 Year
  Sex: Male

DRUGS (3)
  1. SUNITINIB MALATE [Suspect]
     Dosage: 25 MG, UNK
     Route: 048
     Dates: start: 20110330
  2. CIPROFLOXACIN [Concomitant]
     Dosage: 500 MG, UNK
     Route: 048
  3. SIMVASTATIN [Concomitant]
     Dosage: 20 MG, UNK
     Route: 048

REACTIONS (1)
  - HYDROCEPHALUS [None]
